FAERS Safety Report 20760549 (Version 3)
Quarter: 2023Q2

REPORT INFORMATION
  Report Type: Other
  Country: AU (occurrence: AU)
  Receive Date: 20220428
  Receipt Date: 20230525
  Transmission Date: 20230722
  Serious: No
  Sender: FDA-Public Use
  Company Number: AU-TOLMAR, INC.-22AU032806

PATIENT
  Sex: Male

DRUGS (1)
  1. ELIGARD [Suspect]
     Active Substance: LEUPROLIDE ACETATE
     Indication: Prostate cancer
     Dosage: 22.5 MILLIGRAM, Q 3 MONTH
     Dates: start: 20211221

REACTIONS (9)
  - Abdominal pain [Unknown]
  - Peripheral swelling [Unknown]
  - Abdominal rigidity [Unknown]
  - Cartilage atrophy [Recovered/Resolved]
  - Exercise tolerance decreased [Recovered/Resolved]
  - Malaise [Unknown]
  - Hot flush [Recovered/Resolved]
  - Arthralgia [Recovered/Resolved]
  - Fatigue [Recovered/Resolved]
